FAERS Safety Report 10206888 (Version 1)
Quarter: 2014Q2

REPORT INFORMATION
  Report Type: Spontaneous
  Country: US (occurrence: None)
  Receive Date: 20140528
  Receipt Date: 20140528
  Transmission Date: 20141212
  Serious: Yes (Other)
  Sender: FDA-Public Use
  Company Number: None

PATIENT
  Sex: Female
  Weight: 59.1 kg

DRUGS (9)
  1. NAMENDA XR [Suspect]
     Indication: DEMENTIA
     Dosage: 7MG, 7 DAYS, ORAL
     Route: 048
     Dates: start: 20140413, end: 20140516
  2. THERAGRAN-M [Concomitant]
  3. CALCIUM CARBONATE [Concomitant]
  4. SERTRALINE [Concomitant]
  5. LITHIUM [Concomitant]
  6. DONEPEZIL [Concomitant]
  7. PERPHENAZINE [Concomitant]
  8. SOLIFENACIN [Concomitant]
  9. BACLOFEN VIA PUMP [Concomitant]

REACTIONS (5)
  - Hypotonia [None]
  - Apathy [None]
  - Tremor [None]
  - Activities of daily living impaired [None]
  - Impaired self-care [None]
